FAERS Safety Report 25084571 (Version 1)
Quarter: 2025Q1

REPORT INFORMATION
  Report Type: Spontaneous
  Country: FR (occurrence: FR)
  Receive Date: 20250317
  Receipt Date: 20250317
  Transmission Date: 20250409
  Serious: Yes (Hospitalization, Other)
  Sender: CHEPLAPHARM
  Company Number: None

PATIENT
  Age: 77 Year
  Sex: Female
  Weight: 73 kg

DRUGS (35)
  1. CLONAZEPAM [Interacting]
     Active Substance: CLONAZEPAM
     Indication: Pain
     Dosage: DAILY DOSE: 2 DROP
     Route: 048
     Dates: start: 20241226, end: 20250106
  2. CLONAZEPAM [Interacting]
     Active Substance: CLONAZEPAM
     Indication: Pain
     Dosage: DAILY DOSE: 2 DROP
     Route: 048
     Dates: start: 20250109, end: 20250110
  3. OLANZAPINE [Suspect]
     Active Substance: OLANZAPINE
     Dosage: DAILY DOSE: 2.5 MILLIGRAM
     Dates: start: 20250113
  4. PREDNISONE [Interacting]
     Active Substance: PREDNISONE
     Indication: Pain
     Dosage: DAILY DOSE: 120 MILLIGRAM
     Route: 048
     Dates: start: 20241231
  5. PREDNISONE [Interacting]
     Active Substance: PREDNISONE
     Indication: Pain
     Dosage: DAILY DOSE: 80 MILLIGRAM
     Route: 048
     Dates: start: 20250108
  6. PREDNISONE [Interacting]
     Active Substance: PREDNISONE
     Indication: Pain
     Dosage: DAILY DOSE: 60 MILLIGRAM
     Route: 048
     Dates: start: 20250118
  7. PREDNISONE [Interacting]
     Active Substance: PREDNISONE
     Indication: Pain
     Dosage: DAILY DOSE: 40 MILLIGRAM
     Route: 048
     Dates: start: 20250122
  8. OXAZEPAM [Interacting]
     Active Substance: OXAZEPAM
     Indication: Anxiety
     Route: 048
     Dates: start: 20241026, end: 20250116
  9. OXAZEPAM [Interacting]
     Active Substance: OXAZEPAM
     Indication: Anxiety
     Route: 048
     Dates: start: 20250117
  10. METHADONE HYDROCHLORIDE [Interacting]
     Active Substance: METHADONE HYDROCHLORIDE
     Indication: Pain
     Route: 048
     Dates: start: 20241207, end: 20250116
  11. METHADONE HYDROCHLORIDE [Interacting]
     Active Substance: METHADONE HYDROCHLORIDE
     Indication: Pain
     Route: 048
     Dates: start: 20250108, end: 20250116
  12. ZOPICLONE [Interacting]
     Active Substance: ZOPICLONE
     Indication: Sleep disorder
     Route: 048
     Dates: start: 20241028, end: 20250110
  13. ZOPICLONE [Interacting]
     Active Substance: ZOPICLONE
     Indication: Sleep disorder
     Route: 048
     Dates: start: 20250111
  14. VORTIOXETINE HYDROBROMIDE [Interacting]
     Active Substance: VORTIOXETINE HYDROBROMIDE
     Indication: Affective disorder
     Dosage: DAILY DOSE: 5 MILLIGRAM
     Route: 048
     Dates: start: 20241029, end: 20241221
  15. VORTIOXETINE HYDROBROMIDE [Interacting]
     Active Substance: VORTIOXETINE HYDROBROMIDE
     Indication: Affective disorder
     Dosage: ONGOING?DAILY DOSE: 10 MILLIGRAM
     Route: 048
     Dates: start: 20241222
  16. TIAPRIDE HYDROCHLORIDE [Interacting]
     Active Substance: TIAPRIDE HYDROCHLORIDE
     Indication: Agitation
     Route: 042
     Dates: start: 20250106, end: 20250113
  17. METHYLPREDNISOLONE [Suspect]
     Active Substance: METHYLPREDNISOLONE
     Indication: Pain
     Dosage: DAILY DOSE: 160 MILLIGRAM
     Dates: start: 20241212
  18. SKENAN [Concomitant]
     Active Substance: MORPHINE SULFATE
  19. MORPHINE SULFATE [Concomitant]
     Active Substance: MORPHINE SULFATE
     Dosage: IF NECESSARY
  20. POLYETHYLENE GLYCOLS [Concomitant]
     Active Substance: POLYETHYLENE GLYCOLS
  21. ELIQUIS [Concomitant]
     Active Substance: APIXABAN
  22. IRBESARTAN [Concomitant]
     Active Substance: IRBESARTAN
  23. NALOXEGOL OXALATE [Concomitant]
     Active Substance: NALOXEGOL OXALATE
  24. TRIMEBUTINE [Concomitant]
     Active Substance: TRIMEBUTINE
  25. LANSOPRAZOLE [Concomitant]
     Active Substance: LANSOPRAZOLE
  26. AMLODIPINE [Concomitant]
     Active Substance: AMLODIPINE BESYLATE
  27. HYDROCHLOROTHIAZIDE [Concomitant]
     Active Substance: HYDROCHLOROTHIAZIDE
  28. LEVOTHYROXINE [Concomitant]
     Active Substance: LEVOTHYROXINE
  29. BEVACIZUMAB [Concomitant]
     Active Substance: BEVACIZUMAB
     Indication: Adenocarcinoma of colon
     Dates: end: 20241203
  30. LEUCOVORIN [Concomitant]
     Active Substance: LEUCOVORIN\LEUCOVORIN CALCIUM
     Dates: start: 20241226
  31. LEUCOVORIN [Concomitant]
     Active Substance: LEUCOVORIN\LEUCOVORIN CALCIUM
  32. FLUOROURACIL [Concomitant]
     Active Substance: FLUOROURACIL
     Dates: start: 20241226
  33. FLUOROURACIL [Concomitant]
     Active Substance: FLUOROURACIL
  34. IRINOTECAN [Concomitant]
     Active Substance: IRINOTECAN
  35. OXALIPLATIN [Concomitant]
     Active Substance: OXALIPLATIN
     Dates: start: 20241226

REACTIONS (16)
  - Confusional state [Not Recovered/Not Resolved]
  - Agitation [Recovered/Resolved]
  - Hallucination [Not Recovered/Not Resolved]
  - Somnolence [Not Recovered/Not Resolved]
  - Aggression [Unknown]
  - Hypokalaemia [Unknown]
  - Hypophosphataemia [Unknown]
  - Persecutory delusion [Unknown]
  - Haemorrhage [Unknown]
  - Choking [Unknown]
  - Pulmonary congestion [Unknown]
  - Head injury [Unknown]
  - Fall [Unknown]
  - Encephalopathy [Unknown]
  - Clostridium difficile colitis [Unknown]
  - Off label use [Unknown]

NARRATIVE: CASE EVENT DATE: 20241226
